FAERS Safety Report 17770307 (Version 1)
Quarter: 2020Q2

REPORT INFORMATION
  Report Type: Spontaneous
  Country: US (occurrence: US)
  Receive Date: 20200512
  Receipt Date: 20200512
  Transmission Date: 20200714
  Serious: Yes (Other)
  Sender: FDA-Public Use
  Company Number: None

PATIENT
  Age: 56 Year
  Sex: Female
  Weight: 71.1 kg

DRUGS (5)
  1. ESTRADIOL VAGINAL CREAM USP [Suspect]
     Active Substance: ESTRADIOL
     Indication: VULVOVAGINAL MYCOTIC INFECTION
     Dosage: ?          QUANTITY:1 INJECTION(S);OTHER FREQUENCY:2 TIMES A WEEK;?
     Route: 067
     Dates: start: 20200311, end: 20200311
  2. ESTRADIOL VAGINAL CREAM USP [Suspect]
     Active Substance: ESTRADIOL
     Indication: VULVOVAGINAL DRYNESS
     Dosage: ?          QUANTITY:1 INJECTION(S);OTHER FREQUENCY:2 TIMES A WEEK;?
     Route: 067
     Dates: start: 20200311, end: 20200311
  3. WOMENS DAY MULTI VITAMIN [Concomitant]
  4. ESTRADIOL VAGINAL CREAM USP [Suspect]
     Active Substance: ESTRADIOL
     Indication: URINARY TRACT INFECTION
     Dosage: ?          QUANTITY:1 INJECTION(S);OTHER FREQUENCY:2 TIMES A WEEK;?
     Route: 067
     Dates: start: 20200311, end: 20200311
  5. CLARITIN-D NOS [Suspect]
     Active Substance: LORATADINE\PSEUDOEPHEDRINE SULFATE

REACTIONS (7)
  - Product substitution issue [None]
  - Mental impairment [None]
  - Suicidal ideation [None]
  - Headache [None]
  - Influenza like illness [None]
  - Back pain [None]
  - Feeling abnormal [None]

NARRATIVE: CASE EVENT DATE: 20200311
